FAERS Safety Report 8418593-6 (Version None)
Quarter: 2012Q2

REPORT INFORMATION
  Report Type: 
  Country: None (occurrence: None)
  Receive Date: 20120607
  Receipt Date: 20120530
  Transmission Date: 20120825
  Serious: Yes (Other)
  Sender: FDA-Public Use
  Company Number: CA-JNJFOC-20120600547

PATIENT
  Sex: Female
  Weight: 68.6 kg

DRUGS (1)
  1. REMICADE [Suspect]
     Indication: COLITIS ULCERATIVE
     Dosage: START DATE REPORTED AS ^?/?/201^
     Route: 042

REACTIONS (4)
  - VISION BLURRED [None]
  - MIGRAINE [None]
  - PAIN IN JAW [None]
  - ARTHRALGIA [None]
